FAERS Safety Report 7034680-1 (Version None)
Quarter: 2010Q4

REPORT INFORMATION
  Report Type: 
  Country: None (occurrence: None)
  Receive Date: 20101008
  Receipt Date: 20100924
  Transmission Date: 20110411
  Serious: Yes (Other)
  Sender: FDA-Public Use
  Company Number: PHHY2010FR65855

PATIENT
  Age: 52 Year
  Sex: Female
  Weight: 53 kg

DRUGS (3)
  1. PARLODEL [Suspect]
     Dosage: 10 MG, TID
     Route: 048
     Dates: start: 20050501, end: 20080101
  2. STALEVO 100 [Suspect]
     Dosage: 150 MG, TID
     Route: 048
     Dates: start: 20050901, end: 20080101
  3. MODOPAR [Suspect]
     Dosage: 62.5 MG, TID

REACTIONS (4)
  - HYPERSEXUALITY [None]
  - RESTLESSNESS [None]
  - SOMNOLENCE [None]
  - SUDDEN ONSET OF SLEEP [None]
